FAERS Safety Report 19192233 (Version 1)
Quarter: 2021Q2

REPORT INFORMATION
  Report Type: Spontaneous
  Country: US (occurrence: US)
  Receive Date: 20210428
  Receipt Date: 20210428
  Transmission Date: 20210717
  Serious: No
  Sender: FDA-Public Use
  Company Number: US-IGSA-BIG0013768

PATIENT
  Age: 45 Year
  Sex: Female

DRUGS (1)
  1. XEMBIFY [Suspect]
     Active Substance: HUMAN IMMUNOGLOBULIN G
     Indication: PRODUCT USED FOR UNKNOWN INDICATION
     Dosage: UNK
     Dates: start: 20210101

REACTIONS (2)
  - Asthenia [Unknown]
  - Illness [Unknown]

NARRATIVE: CASE EVENT DATE: 2021
